FAERS Safety Report 7706799-0 (Version None)
Quarter: 2011Q3

REPORT INFORMATION
  Report Type: 
  Country: None (occurrence: None)
  Receive Date: 20110824
  Receipt Date: 20110819
  Transmission Date: 20111222
  Serious: Yes (Hospitalization, Disabling, Other)
  Sender: FDA-Public Use
  Company Number: US-MERCK-1012USA02522

PATIENT
  Age: 72 Year
  Sex: Female

DRUGS (1)
  1. FOSAMAX [Suspect]
     Indication: OSTEOPOROSIS
     Route: 048
     Dates: start: 19970301, end: 20091117

REACTIONS (5)
  - FEMUR FRACTURE [None]
  - OSTEOPOROSIS [None]
  - IMPAIRED HEALING [None]
  - ARTHROPATHY [None]
  - LOW TURNOVER OSTEOPATHY [None]
